FAERS Safety Report 7781296-5 (Version None)
Quarter: 2011Q3

REPORT INFORMATION
  Report Type: 
  Country: None (occurrence: None)
  Receive Date: 20110927
  Receipt Date: 20110923
  Transmission Date: 20111222
  Serious: No
  Sender: FDA-Public Use
  Company Number: US-PFIZER INC-2011227823

PATIENT
  Sex: Female
  Weight: 70.295 kg

DRUGS (2)
  1. GEODON [Suspect]
     Indication: DEMENTIA
     Dosage: 20 MG, 2X/DAY
     Route: 048
     Dates: start: 20051101
  2. GEODON [Suspect]
     Indication: SCHIZOPHRENIA
     Dosage: 40 MG, 2X/DAY
     Route: 048
     Dates: end: 20100801

REACTIONS (1)
  - SCREAMING [None]
